FAERS Safety Report 7656461 (Version 2)
Quarter: 2020Q3

REPORT INFORMATION
  Report Type: Report from Study
  Country: US (occurrence: US)
  Receive Date: 20101104
  Receipt Date: 20101112
  Transmission Date: 20201105
  Serious: Yes (Other)
  Sender: FDA-Public Use
  Company Number: US-ROCHE-502613

PATIENT
  Age: 78 Year
  Sex: Female
  Weight: 63.5 kg

DRUGS (5)
  1. TAMBOCOR [Concomitant]
     Active Substance: FLECAINIDE ACETATE
     Dosage: REPORTED AS TAMPOCOR.
  2. ASPIRIN. [Concomitant]
     Active Substance: ASPIRIN
     Dosage: REPORTED AS BABY ASPIRIN.
  3. CALCIUM [Concomitant]
     Active Substance: CALCIUM
  4. VERAPAMIL HYDROCHLORIDE. [Concomitant]
     Active Substance: VERAPAMIL HYDROCHLORIDE
  5. IBANDRONIC ACID. [Suspect]
     Active Substance: IBANDRONIC ACID
     Indication: OSTEOPOROSIS
     Dosage: CO?INDICATION: OSTEOPENIA
     Route: 048
     Dates: start: 20061213

REACTIONS (5)
  - Jaw disorder [Unknown]
  - Trismus [Not Recovered/Not Resolved]
  - Upper limb fracture [Unknown]
  - Tooth loss [Unknown]
  - Periodontal disease [Not Recovered/Not Resolved]

NARRATIVE: CASE EVENT DATE: 20100621
